FAERS Safety Report 25791130 (Version 1)
Quarter: 2025Q3

REPORT INFORMATION
  Report Type: Spontaneous
  Country: US (occurrence: None)
  Receive Date: 20250910
  Receipt Date: 20250910
  Transmission Date: 20251021
  Serious: Yes (Other)
  Sender: FDA-CTU
  Company Number: None

PATIENT
  Age: 38 Year
  Sex: Female

DRUGS (1)
  1. IRON DEXTRAN [Suspect]
     Active Substance: IRON DEXTRAN

REACTIONS (3)
  - Motion sickness [None]
  - Hypoaesthesia oral [None]
  - Infusion related reaction [None]

NARRATIVE: CASE EVENT DATE: 20250906
